FAERS Safety Report 21046688 (Version 2)
Quarter: 2022Q3

REPORT INFORMATION
  Report Type: Spontaneous
  Country: GB (occurrence: GB)
  Receive Date: 20220706
  Receipt Date: 20220719
  Transmission Date: 20221027
  Serious: Yes (Hospitalization)
  Sender: FDA-Public Use
  Company Number: GB-MYLANLABS-2022M1050552

PATIENT
  Age: 59 Year
  Sex: Female
  Weight: 67.2 kg

DRUGS (7)
  1. CLOZARIL [Suspect]
     Active Substance: CLOZAPINE
     Indication: Schizophrenia
     Dosage: UNK
     Route: 048
     Dates: start: 20220608, end: 20220621
  2. CLOZARIL [Suspect]
     Active Substance: CLOZAPINE
     Indication: Bipolar disorder
     Dosage: UNK
     Route: 048
     Dates: start: 20220608, end: 20220624
  3. CLOZARIL [Suspect]
     Active Substance: CLOZAPINE
     Dosage: 175 MILLIGRAM, QD (75 MG IN THE MORNING THEN 100 MG IN THE EVENING)
     Route: 065
     Dates: start: 20220617
  4. CLOZARIL [Suspect]
     Active Substance: CLOZAPINE
     Dosage: 100 MILLIGRAM
     Route: 065
     Dates: start: 20220618
  5. CLOZARIL [Suspect]
     Active Substance: CLOZAPINE
     Dosage: 100 MILLIGRAM, HS
     Route: 065
     Dates: start: 20220620
  6. CLOZARIL [Suspect]
     Active Substance: CLOZAPINE
     Dosage: 100 MILLIGRAM, AM
     Route: 065
     Dates: start: 20220621
  7. LINEZOLID [Concomitant]
     Active Substance: LINEZOLID
     Dosage: 600 MILLIGRAM (ESTIMATED DURATION OF 28 DAYS)
     Route: 065

REACTIONS (5)
  - Hospitalisation [Unknown]
  - Schizophrenia [Unknown]
  - Confusional state [Unknown]
  - Infection [Unknown]
  - Myocarditis [Unknown]

NARRATIVE: CASE EVENT DATE: 20220608
